FAERS Safety Report 20066637 (Version 2)
Quarter: 2021Q4

REPORT INFORMATION
  Report Type: Spontaneous
  Country: US (occurrence: US)
  Receive Date: 20211115
  Receipt Date: 20211116
  Transmission Date: 20220303
  Serious: No
  Sender: FDA-Public Use
  Company Number: US-BEH-2021138195

PATIENT
  Sex: Female

DRUGS (21)
  1. HIZENTRA [Suspect]
     Active Substance: HUMAN IMMUNOGLOBULIN G
     Indication: Immunodeficiency common variable
     Dosage: 13 GRAM (65 ML), QW
     Route: 058
     Dates: start: 20210115
  2. HIZENTRA [Suspect]
     Active Substance: HUMAN IMMUNOGLOBULIN G
     Dosage: UNK
     Route: 065
  3. HIZENTRA [Suspect]
     Active Substance: HUMAN IMMUNOGLOBULIN G
     Dosage: 10 UNK
     Route: 065
     Dates: start: 20211105
  4. ACETAMINOPHEN [Concomitant]
     Active Substance: ACETAMINOPHEN
  5. ALLEGRA ALLERGY [Concomitant]
     Active Substance: FEXOFENADINE HYDROCHLORIDE
  6. BENZONATATE [Concomitant]
     Active Substance: BENZONATATE
  7. BIOTIN [Concomitant]
     Active Substance: BIOTIN
  8. DIPHENHYDRAMINE [Concomitant]
     Active Substance: DIPHENHYDRAMINE
  9. EPINEPHRINE [Concomitant]
     Active Substance: EPINEPHRINE
  10. FOLIC ACID [Concomitant]
     Active Substance: FOLIC ACID
  11. FOLIC ACID [Concomitant]
     Active Substance: FOLIC ACID
  12. GAMUNEX-C [Concomitant]
     Active Substance: HUMAN IMMUNOGLOBULIN G
  13. KEPPRA [Concomitant]
     Active Substance: LEVETIRACETAM
  14. LAMICTAL [Concomitant]
     Active Substance: LAMOTRIGINE
  15. LIDOCAINE\PRILOCAINE [Concomitant]
     Active Substance: LIDOCAINE\PRILOCAINE
  16. OMEPRAZOLE [Concomitant]
     Active Substance: OMEPRAZOLE
  17. PEPCID AC [Concomitant]
     Active Substance: FAMOTIDINE
  18. PLAQUENIL [Concomitant]
     Active Substance: HYDROXYCHLOROQUINE SULFATE
  19. PREDNISONE [Concomitant]
     Active Substance: PREDNISONE
  20. TESSALON [Concomitant]
     Active Substance: BENZONATATE
  21. TYLENOL [Concomitant]
     Active Substance: ACETAMINOPHEN

REACTIONS (8)
  - Infusion site erythema [Recovered/Resolved]
  - Recalled product administered [Recovered/Resolved]
  - Injection site swelling [Recovered/Resolved]
  - Recalled product administered [Recovered/Resolved]
  - Injection site pruritus [Recovered/Resolved]
  - Recalled product administered [Recovered/Resolved]
  - Unevaluable event [Unknown]
  - Recalled product administered [Unknown]
